FAERS Safety Report 8557983-8 (Version None)
Quarter: 2012Q3

REPORT INFORMATION
  Report Type: 
  Country: None (occurrence: None)
  Receive Date: 20120720
  Receipt Date: 20120312
  Transmission Date: 20120928
  Serious: Yes (Other)
  Sender: FDA-Public Use
  Company Number: GGEL20120300281

PATIENT
  Age: 19 Year
  Sex: Male

DRUGS (1)
  1. LITHIUM CARBONATE [Suspect]
     Indication: PRODUCT USED FOR UNKNOWN INDICATION
     Dosage: ORAL
     Route: 048

REACTIONS (5)
  - AGITATION [None]
  - MYDRIASIS [None]
  - TOXICITY TO VARIOUS AGENTS [None]
  - MOOD SWINGS [None]
  - HYPERHIDROSIS [None]
